FAERS Safety Report 5584772-9 (Version None)
Quarter: 2008Q1

REPORT INFORMATION
  Report Type: 
  Country: None (occurrence: None)
  Receive Date: 20080103
  Receipt Date: 20071220
  Transmission Date: 20080703
  Serious: Yes (Disabling)
  Sender: FDA-Public Use
  Company Number: NL-WYE-G00601607

PATIENT
  Age: 16 Year
  Sex: Female

DRUGS (4)
  1. STEDIRIL-30 (LEVONORGESTREL/ETHINYL ESTRADIOL, TABLET, 0) [Suspect]
     Indication: ABDOMINAL PAIN
     Dates: start: 20050101
  2. PAROXETINE HYDROCHLORIDE [Concomitant]
  3. PANTOPRAZOLE SODIUM [Concomitant]
  4. OXAZEPAM [Concomitant]

REACTIONS (2)
  - CHRONIC FATIGUE SYNDROME [None]
  - CONDITION AGGRAVATED [None]
